FAERS Safety Report 7669199-8 (Version None)
Quarter: 2011Q3

REPORT INFORMATION
  Report Type: 
  Country: None (occurrence: None)
  Receive Date: 20110808
  Receipt Date: 20110729
  Transmission Date: 20111222
  Serious: Yes (Hospitalization, Other)
  Sender: FDA-Public Use
  Company Number: PHEH2010US00462

PATIENT
  Sex: Male
  Weight: 108.84 kg

DRUGS (11)
  1. MAGNESIUM CITRATE [Concomitant]
  2. LEVOTHYROXINE SODIUM [Concomitant]
     Dosage: 0.1 MG, QD
     Route: 048
  3. PROPOFOL [Concomitant]
  4. AVAPRO [Concomitant]
     Dosage: 150 MG, BID
     Route: 048
  5. BENADRYL [Concomitant]
     Indication: INSOMNIA
     Dosage: 25 MG, QH
     Route: 048
  6. FENTANYL [Concomitant]
  7. AREDIA [Suspect]
  8. DROPERIDOL [Concomitant]
  9. TYLENOL-500 [Concomitant]
     Indication: HEADACHE
  10. ZOMETA [Suspect]
  11. TYLENOL-500 [Concomitant]
     Indication: PYREXIA

REACTIONS (10)
  - NEOPLASM PROGRESSION [None]
  - ADRENAL MASS [None]
  - PHYSICAL DISABILITY [None]
  - NEOPLASM MALIGNANT [None]
  - GENERAL PHYSICAL HEALTH DETERIORATION [None]
  - PAIN [None]
  - DECREASED INTEREST [None]
  - ANXIETY [None]
  - CONSTIPATION [None]
  - OSTEONECROSIS OF JAW [None]
